FAERS Safety Report 7290449-4 (Version None)
Quarter: 2011Q1

REPORT INFORMATION
  Report Type: 
  Country: None (occurrence: None)
  Receive Date: 20110214
  Receipt Date: 20110209
  Transmission Date: 20110831
  Serious: No
  Sender: FDA-Public Use
  Company Number: US-PFIZER INC-2011029656

PATIENT
  Sex: Female
  Weight: 79.365 kg

DRUGS (10)
  1. DRONEDARONE HCL [Suspect]
     Indication: ATRIAL FIBRILLATION
     Dosage: 400 MG, 3X/DAY
     Route: 048
     Dates: start: 20101101
  2. THYROID [Concomitant]
     Indication: HYPOTHYROIDISM
     Dosage: 60 MG, 1X/DAY
     Route: 048
  3. LISINOPRIL [Concomitant]
     Indication: HYPERTENSION
     Dosage: 1 MG, 1X/DAY
     Route: 048
  4. WARFARIN SODIUM [Concomitant]
     Indication: CARDIAC DISORDER
     Dosage: 5 MG TWO DAYS AND 7.5 MG FOR 2 DAYS
  5. BUSPAR [Concomitant]
     Indication: ANXIETY
     Dosage: 15 MG, 3X/DAY
     Route: 048
  6. PROTONIX [Concomitant]
     Indication: GASTROOESOPHAGEAL REFLUX DISEASE
     Dosage: 40 MG, 2X/DAY
     Route: 048
  7. ATARAX [Concomitant]
     Indication: HYPOTHYROIDISM
     Dosage: 4 25 MG TABLETS AT BEDTIME AND 3 IN THE AM
     Route: 048
  8. LIPITOR [Suspect]
     Indication: BLOOD CHOLESTEROL INCREASED
     Dosage: 20 MG, 1X/DAY
     Route: 048
     Dates: end: 20110106
  9. LOPRESSOR [Concomitant]
     Indication: HYPERTENSION
     Dosage: 250 MG, 1X/DAY
     Route: 048
  10. ZOFRAN [Concomitant]
     Indication: NAUSEA
     Dosage: 8 MG, 2-3 TIMES PER DAY
     Route: 048

REACTIONS (3)
  - MYALGIA [None]
  - PAIN [None]
  - MUSCLE SPASMS [None]
